FAERS Safety Report 12503997 (Version 1)
Quarter: 2016Q2

REPORT INFORMATION
  Report Type: Spontaneous
  Country: CH (occurrence: CH)
  Receive Date: 20160628
  Receipt Date: 20160628
  Transmission Date: 20160815
  Serious: Yes (Hospitalization)
  Sender: FDA-Public Use
  Company Number: CH-PFIZER INC-2016313365

PATIENT
  Age: 53 Year
  Sex: Male

DRUGS (17)
  1. ENTUMINE [Interacting]
     Active Substance: CLOTHIAPINE
     Indication: SCHIZOAFFECTIVE DISORDER
     Dosage: 40 MG, 2X/DAY
     Route: 048
     Dates: start: 2015
  2. MST CONTINUS [Interacting]
     Active Substance: MORPHINE SULFATE
     Dosage: 20 MG, 2X/DAY
     Route: 048
  3. CLEXANE [Concomitant]
     Active Substance: ENOXAPARIN SODIUM
     Dosage: 40 MG, 1X/DAY
     Route: 058
  4. TRILEPTAL [Interacting]
     Active Substance: OXCARBAZEPINE
     Indication: SCHIZOAFFECTIVE DISORDER
     Dosage: 600 MG, 1X/DAY
     Route: 048
     Dates: start: 2015
  5. DAONIL [Concomitant]
     Active Substance: GLYBURIDE
     Dosage: 2.5 MG, 2X/DAY
     Route: 048
  6. ASPIRIN CARDIO [Concomitant]
     Active Substance: ASPIRIN
     Dosage: 100 MG, 1X/DAY
     Route: 048
  7. XANAX [Interacting]
     Active Substance: ALPRAZOLAM
     Dosage: 4.25 MG, DAILY
     Route: 048
     Dates: start: 20151202, end: 20151202
  8. MST CONTINUS [Interacting]
     Active Substance: MORPHINE SULFATE
     Dosage: 42.5 MG (20 MG X2/DAY + 2.5 MG)
     Route: 048
     Dates: start: 20151202, end: 20151202
  9. SPIRIVA [Concomitant]
     Active Substance: TIOTROPIUM BROMIDE MONOHYDRATE
     Dosage: 18 UG, 1X/DAY
     Route: 055
  10. NOVORAPID [Concomitant]
     Active Substance: INSULIN ASPART
     Dosage: 4 IU, 1X/DAY
     Route: 058
  11. LISINOPRIL. [Concomitant]
     Active Substance: LISINOPRIL
     Dosage: 15 MG, 1X/DAY
     Route: 048
  12. CRESTOR [Concomitant]
     Active Substance: ROSUVASTATIN CALCIUM
     Dosage: 5 MG, 1X/DAY
     Route: 048
  13. LAXOBERON [Concomitant]
     Active Substance: SODIUM PICOSULFATE
     Dosage: 10 MG, 1X/DAY
     Route: 048
  14. PURSANA [Concomitant]
     Active Substance: FIG FRUIT OIL\SORBITOL
     Dosage: 15 ML, 1X/DAY
     Route: 048
  15. SERETIDE [Concomitant]
     Active Substance: FLUTICASONE PROPIONATE\SALMETEROL XINAFOATE
     Dosage: 1 DF, 4X/DAY
     Route: 055
  16. XANAX [Suspect]
     Active Substance: ALPRAZOLAM
     Indication: SCHIZOAFFECTIVE DISORDER
     Dosage: 3 MG (2MG + 2X 0.5 MG ON DEMAND)
     Route: 048
     Dates: start: 2015, end: 2015
  17. METFORMIN [Concomitant]
     Active Substance: METFORMIN HYDROCHLORIDE
     Dosage: 850 MG, 2X/DAY
     Route: 048

REACTIONS (2)
  - Respiratory failure [Recovered/Resolved]
  - Drug interaction [Recovered/Resolved]

NARRATIVE: CASE EVENT DATE: 20151202
